FAERS Safety Report 9994719 (Version 1)
Quarter: 2014Q1

REPORT INFORMATION
  Report Type: Spontaneous
  Country: US (occurrence: US)
  Receive Date: 20140311
  Receipt Date: 20140311
  Transmission Date: 20141002
  Serious: Yes (Other)
  Sender: FDA-Public Use
  Company Number: US-SHIRE-US201400259

PATIENT
  Sex: 0

DRUGS (8)
  1. ADDERALL XR [Suspect]
     Indication: ATTENTION DEFICIT/HYPERACTIVITY DISORDER
     Dosage: 20 MG, 2X/DAY:BID (1 IN MORNING AND 1 AT NOON)
     Route: 048
     Dates: start: 2009, end: 201401
  2. ADDERALL XR [Suspect]
     Dosage: 20 MG, 2X/DAY:BID(1 IN THE MORNING AND 1 AT NOON ON SCHOOL DAYS)
     Dates: start: 201401
  3. ADDERALL XR [Suspect]
     Dosage: UNK(HALF DOSE), 2X/DAY:BID
     Route: 048
     Dates: start: 201401
  4. ADDERALL [Concomitant]
     Indication: ATTENTION DEFICIT/HYPERACTIVITY DISORDER
     Dosage: 10 MG, 1X/DAY:QD(3 PM ON SCHOOL DAYS)
     Route: 048
  5. TRILEPTAL [Concomitant]
     Indication: MOOD SWINGS
     Dosage: 600 MG, 2X/DAY:BID
     Route: 048
     Dates: start: 2009
  6. RISPERDAL [Concomitant]
     Indication: ANXIETY
     Dosage: 0.5 MG, 1X/DAY:QD (IN THE MORNING)
     Route: 048
     Dates: start: 2009
  7. RISPERDAL [Concomitant]
     Dosage: 1 MG, 1X/DAY:QD(IN THE EVENING)
     Route: 048
     Dates: start: 2009
  8. VITAMIN D3 [Concomitant]
     Indication: PROPHYLAXIS
     Dosage: 5000 MG, 1X/DAY:QD
     Route: 048

REACTIONS (7)
  - Brain neoplasm [Not Recovered/Not Resolved]
  - Optic nerve disorder [Not Recovered/Not Resolved]
  - Hormone level abnormal [Not Recovered/Not Resolved]
  - Visual acuity reduced [Not Recovered/Not Resolved]
  - Thyroid disorder [Not Recovered/Not Resolved]
  - Prescribed overdose [Not Recovered/Not Resolved]
  - Drug prescribing error [Not Recovered/Not Resolved]
